FAERS Safety Report 24347098 (Version 1)
Quarter: 2024Q3

REPORT INFORMATION
  Report Type: Report from Study
  Country: CA (occurrence: CA)
  Receive Date: 20240921
  Receipt Date: 20240921
  Transmission Date: 20241017
  Serious: Yes (Other)
  Sender: CELLTRION
  Company Number: CA-PFIZER INC-202400255504

PATIENT

DRUGS (1)
  1. INFLIXIMAB [Suspect]
     Active Substance: INFLIXIMAB
     Indication: Crohn^s disease
     Dosage: 10 MG/KG 1 EVERY 8 WEEKS
     Route: 041

REACTIONS (5)
  - Abscess [Unknown]
  - Anal fistula [Unknown]
  - Crohn^s disease [Unknown]
  - Gastrointestinal fistula [Unknown]
  - Large intestinal stenosis [Unknown]
